FAERS Safety Report 8866150 (Version 2)
Quarter: 2013Q2

REPORT INFORMATION
  Report Type: Report from Study
  Country: DE (occurrence: DE)
  Receive Date: 20121025
  Receipt Date: 20130503
  Transmission Date: 20140414
  Serious: Yes (Hospitalization)
  Sender: FDA-Public Use
  Company Number: DE-PFIZER INC-2012254798

PATIENT
  Age: 68 Year
  Sex: Female
  Weight: 130 kg

DRUGS (3)
  1. AROMASIN [Suspect]
     Indication: BREAST CANCER
     Dosage: 25 MG, 1X/DAY
     Route: 048
     Dates: start: 20120105
  2. DOCETAXEL [Suspect]
     Indication: BREAST CANCER
     Dosage: 190 MG, UNK
     Route: 042
     Dates: start: 20110704, end: 20111025
  3. CYCLOPHOSPHAMIDE [Suspect]
     Indication: BREAST CANCER
     Dosage: 1524 MG, UNK
     Route: 042
     Dates: start: 20110704, end: 20111025

REACTIONS (3)
  - General physical health deterioration [Recovered/Resolved]
  - Oedema [Recovered/Resolved]
  - Bone pain [Recovered/Resolved]
